FAERS Safety Report 16439746 (Version 2)
Quarter: 2019Q2

REPORT INFORMATION
  Report Type: Spontaneous
  Country: US (occurrence: US)
  Receive Date: 20190617
  Receipt Date: 20190621
  Transmission Date: 20190711
  Serious: Yes (Other)
  Sender: FDA-Public Use
  Company Number: US-PFIZER INC-2019249400

PATIENT
  Age: 80 Year
  Sex: Female

DRUGS (2)
  1. EFFEXOR XR [Suspect]
     Active Substance: VENLAFAXINE HYDROCHLORIDE
     Indication: DEPRESSION
     Dosage: 75 MG, 1X/DAY
  2. VALIUM [Concomitant]
     Active Substance: DIAZEPAM
     Dosage: 10 MG, UNK

REACTIONS (38)
  - Weight decreased [Unknown]
  - Tremor [Unknown]
  - Blood pressure abnormal [Unknown]
  - Increased appetite [Unknown]
  - Back disorder [Not Recovered/Not Resolved]
  - Chills [Unknown]
  - Condition aggravated [Unknown]
  - Weight increased [Unknown]
  - Insomnia [Unknown]
  - Muscle spasms [Unknown]
  - Off label use [Unknown]
  - Product use issue [Unknown]
  - Vision blurred [Unknown]
  - Blindness [Unknown]
  - Malaise [Not Recovered/Not Resolved]
  - Blood test abnormal [Unknown]
  - Hyperhidrosis [Unknown]
  - Nausea [Unknown]
  - Myalgia [Unknown]
  - Blood cholesterol increased [Unknown]
  - Dyspnoea [Unknown]
  - Logorrhoea [Unknown]
  - Thyroid disorder [Unknown]
  - Drug ineffective [Unknown]
  - Headache [Unknown]
  - Disturbance in attention [Unknown]
  - Swollen tongue [Unknown]
  - Mouth swelling [Unknown]
  - Anxiety [Unknown]
  - Dizziness [Unknown]
  - Musculoskeletal discomfort [Not Recovered/Not Resolved]
  - Infection [Unknown]
  - Irritability [Unknown]
  - Vomiting [Unknown]
  - Amnesia [Unknown]
  - Dry mouth [Unknown]
  - Fatigue [Unknown]
  - Nervousness [Unknown]
